FAERS Safety Report 5658719-0 (Version None)
Quarter: 2008Q1

REPORT INFORMATION
  Report Type: 
  Country: None (occurrence: None)
  Receive Date: 20080310
  Receipt Date: 20070521
  Transmission Date: 20080703
  Serious: No
  Sender: FDA-Public Use
  Company Number: US-BAYER-200711003BCC

PATIENT
  Age: 75 Year
  Sex: Female
  Weight: 67 kg

DRUGS (10)
  1. ALEVE [Suspect]
     Indication: ARTHRALGIA
     Dosage: TOTAL DAILY DOSE: 440 MG  UNIT DOSE: 220 MG
     Route: 048
     Dates: start: 20070504
  2. ALEVE [Suspect]
     Dosage: TOTAL DAILY DOSE: 1320 MG  UNIT DOSE: 220 MG
     Route: 048
  3. ALEVE [Suspect]
     Dosage: UNIT DOSE: 220 MG
     Route: 048
     Dates: start: 20070115
  4. ASPIRIN [Suspect]
     Indication: CARDIOVASCULAR EVENT PROPHYLAXIS
     Dosage: TOTAL DAILY DOSE: 81 MG  UNIT DOSE: 81 MG
     Route: 048
     Dates: start: 20030101
  5. TYLENOL (CAPLET) [Suspect]
     Dosage: UNIT DOSE: 650 MG
  6. TOPROL [Concomitant]
     Dates: start: 20030101
  7. PLAVIX [Concomitant]
     Dates: start: 20030101
  8. LOTREL [Concomitant]
     Dates: start: 20030101
  9. CALCIUM [Concomitant]
     Dates: start: 20050101
  10. VITAMIN D [Concomitant]
     Dates: start: 20051101

REACTIONS (3)
  - JOINT SWELLING [None]
  - MYALGIA [None]
  - OEDEMA PERIPHERAL [None]
